FAERS Safety Report 5370915-9 (Version None)
Quarter: 2007Q2

REPORT INFORMATION
  Report Type: 
  Country: None (occurrence: None)
  Receive Date: 20070614
  Receipt Date: 20070329
  Transmission Date: 20071010
  Serious: No
  Sender: FDA-Public Use
  Company Number: BDI-009307

PATIENT
  Age: 16 Year
  Sex: Male
  Weight: 142.73 kg

DRUGS (2)
  1. MULTIHANCE [Suspect]
     Indication: NUCLEAR MAGNETIC RESONANCE IMAGING BRAIN
     Dosage: 20 ML ONCE IV
     Route: 042
     Dates: start: 20070322, end: 20070322
  2. MULTIHANCE [Suspect]
     Indication: PAPILLOEDEMA
     Dosage: 20 ML ONCE IV
     Route: 042
     Dates: start: 20070322, end: 20070322

REACTIONS (2)
  - NAUSEA [None]
  - VOMITING [None]
